FAERS Safety Report 9596417 (Version 1)
Quarter: 2013Q4

REPORT INFORMATION
  Report Type: Spontaneous
  Country: US (occurrence: US)
  Receive Date: 20131004
  Receipt Date: 20131004
  Transmission Date: 20140711
  Serious: Yes (Other)
  Sender: FDA-Public Use
  Company Number: US-PFIZER INC-2013283405

PATIENT
  Age: 85 Year
  Sex: Female

DRUGS (6)
  1. ATORVASTATIN CALCIUM [Suspect]
     Dosage: 20 MG, DAILY
     Dates: start: 2013, end: 2013
  2. METFORMIN [Concomitant]
     Indication: DIABETES MELLITUS
     Dosage: 500 MG, 3X/DAY
  3. GLYBURIDE [Concomitant]
     Indication: DIABETES MELLITUS
     Dosage: 5 MG, DAILY
  4. COUMADIN [Concomitant]
     Dosage: 7 MG, DAILY
  5. LOSARTAN [Concomitant]
     Dosage: 100 MG, DAILY
  6. METOPROLOL [Concomitant]
     Dosage: 50 MG, DAILY

REACTIONS (5)
  - Abasia [Unknown]
  - Pain in extremity [Recovered/Resolved]
  - Drug ineffective [Unknown]
  - Drug dispensing error [Unknown]
  - Wrong drug administered [Unknown]
